FAERS Safety Report 13704586 (Version 1)
Quarter: 2017Q2

REPORT INFORMATION
  Report Type: Spontaneous
  Country: US (occurrence: US)
  Receive Date: 20170629
  Receipt Date: 20170629
  Transmission Date: 20170830
  Serious: Yes (Life-Threatening, Disabling)
  Sender: FDA-Public Use
  Company Number: None

PATIENT
  Age: 23 Year
  Sex: Female
  Weight: 112.5 kg

DRUGS (4)
  1. CLONAZEPAM. [Suspect]
     Active Substance: CLONAZEPAM
     Indication: ANXIETY
     Dosage: OTHER STRENGTH:MG;QUANTITY:45 TABLET(S);?EVERY 12 HOURS ORAL
     Route: 048
     Dates: start: 20121102
  2. PAROXETINE. [Concomitant]
     Active Substance: PAROXETINE
  3. IBUPROFEN. [Concomitant]
     Active Substance: IBUPROFEN
  4. TYLENOL. [Concomitant]

REACTIONS (21)
  - Hallucination, auditory [None]
  - Paraesthesia [None]
  - Palpitations [None]
  - Disturbance in attention [None]
  - Bedridden [None]
  - Insomnia [None]
  - Agitation [None]
  - Intrusive thoughts [None]
  - Hallucination, visual [None]
  - Tremor [None]
  - Feeling abnormal [None]
  - Bipolar disorder [None]
  - Hunger [None]
  - Seizure [None]
  - Cerebral disorder [None]
  - Hot flush [None]
  - CSF test abnormal [None]
  - Hypoaesthesia [None]
  - Influenza like illness [None]
  - Memory impairment [None]
  - Agoraphobia [None]

NARRATIVE: CASE EVENT DATE: 20121102
